FAERS Safety Report 6279513-6 (Version None)
Quarter: 2009Q3

REPORT INFORMATION
  Report Type: 
  Country: None (occurrence: None)
  Receive Date: 20090723
  Receipt Date: 20090717
  Transmission Date: 20100115
  Serious: Yes (Hospitalization)
  Sender: FDA-Public Use
  Company Number: US-GILEAD-2009-0022654

PATIENT
  Sex: Female

DRUGS (11)
  1. LETAIRIS [Suspect]
     Indication: PULMONARY ARTERIAL HYPERTENSION
     Route: 048
     Dates: end: 20090604
  2. REVATIO [Concomitant]
  3. METOPROLOL SUCCINATE [Concomitant]
  4. LOVASTATIN [Concomitant]
  5. LISINOPRIL [Concomitant]
  6. CHOLESTYRAMINE POWDER [Concomitant]
  7. LASIX [Concomitant]
  8. ASPIRIN [Concomitant]
  9. PRILOSEC [Concomitant]
  10. K+ [Concomitant]
  11. MAG OX [Concomitant]

REACTIONS (3)
  - DYSPNOEA [None]
  - OEDEMA PERIPHERAL [None]
  - SKIN DISCOLOURATION [None]
